FAERS Safety Report 7265746-9 (Version None)
Quarter: 2011Q1

REPORT INFORMATION
  Report Type: 
  Country: None (occurrence: None)
  Receive Date: 20110131
  Receipt Date: 20110117
  Transmission Date: 20110831
  Serious: Yes (Other)
  Sender: FDA-Public Use
  Company Number: US-ELI_LILLY_AND_COMPANY-US201101004199

PATIENT
  Sex: Male

DRUGS (17)
  1. SOMA [Concomitant]
  2. SEROQUEL [Concomitant]
  3. VITAMIN D [Concomitant]
  4. LISINOPRIL [Concomitant]
  5. METOPROLOL TARTRATE [Concomitant]
  6. OXYCODONE HCL [Concomitant]
  7. SENNA [Concomitant]
  8. SIMVASTATIN [Concomitant]
  9. DOCUSATE SODIUM [Concomitant]
  10. CALCIUM +VIT D [Concomitant]
  11. FORTEO [Suspect]
     Dosage: 20 UG, DAILY (1/D)
  12. FORTEO [Suspect]
     Dosage: 20 UG, DAILY (1/D)
  13. LORAZEPAM [Concomitant]
  14. METHADONE HCL [Concomitant]
  15. PAXIL [Concomitant]
     Dosage: UNK, EACH MORNING
  16. ASPIRIN [Concomitant]
  17. FUROSEMIDE [Concomitant]

REACTIONS (2)
  - PROSTATE CANCER METASTATIC [None]
  - MASS [None]
